FAERS Safety Report 9800561 (Version 3)
Quarter: 2014Q1

REPORT INFORMATION
  Report Type: Spontaneous
  Country: JP (occurrence: JP)
  Receive Date: 20140107
  Receipt Date: 20140312
  Transmission Date: 20141002
  Serious: Yes (Death, Hospitalization)
  Sender: FDA-Public Use
  Company Number: JP-ROCHE-1309013

PATIENT
  Age: 76 Year
  Sex: Female
  Weight: 47 kg

DRUGS (6)
  1. AVASTIN [Suspect]
     Indication: BREAST CANCER METASTATIC
     Route: 041
     Dates: start: 20120314, end: 20120918
  2. PACLITAXEL [Concomitant]
     Indication: BREAST CANCER METASTATIC
     Route: 041
     Dates: start: 20120314, end: 20120918
  3. ADALAT [Concomitant]
     Indication: HYPERTENSION
     Dosage: DOSAGE IS UNCERTAIN.
     Route: 048
  4. MEVALOTIN [Concomitant]
     Indication: DYSLIPIDAEMIA
     Dosage: DOSAGE IS UNCERTAIN.
     Route: 048
  5. EPADEL [Concomitant]
     Indication: DYSLIPIDAEMIA
     Dosage: DOSAGE IS UNCERTAIN.
     Route: 048
  6. AMARYL [Concomitant]
     Indication: DIABETES MELLITUS
     Dosage: DOSAGE IS UNCERTAIN.
     Route: 048

REACTIONS (3)
  - Pulmonary artery thrombosis [Recovered/Resolved]
  - Metastases to lung [Fatal]
  - Metastases to central nervous system [Fatal]
